FAERS Safety Report 9302068 (Version 1)
Quarter: 2013Q2

REPORT INFORMATION
  Report Type: Spontaneous
  Country: US (occurrence: US)
  Receive Date: 20130521
  Receipt Date: 20130521
  Transmission Date: 20140414
  Serious: Yes (Other)
  Sender: FDA-Public Use
  Company Number: US-BAXTER-2013BAX016834

PATIENT
  Age: 46 Year
  Sex: Female

DRUGS (4)
  1. 5% DEXTROSE INJECTION USP [Suspect]
     Indication: FATIGUE
     Route: 065
  2. 5% DEXTROSE INJECTION USP [Suspect]
  3. ACTH [Suspect]
     Indication: FATIGUE
  4. DEXAMETHASONE [Suspect]
     Indication: PRODUCT USED FOR UNKNOWN INDICATION
     Route: 065

REACTIONS (1)
  - Hyponatraemia [Recovered/Resolved]
